FAERS Safety Report 7244661-0 (Version None)
Quarter: 2011Q1

REPORT INFORMATION
  Report Type: 
  Country: None (occurrence: None)
  Receive Date: 20110125
  Receipt Date: 20101228
  Transmission Date: 20110831
  Serious: No
  Sender: FDA-Public Use
  Company Number: US-MYLANLABS-2010S1023635

PATIENT
  Age: 17 Year
  Sex: Male

DRUGS (7)
  1. VITAMIN D [Concomitant]
  2. ALBUTEROL INHALER [Concomitant]
  3. BUPROPION HYDROCHLORIDE [Suspect]
     Indication: DEPRESSION
     Route: 048
     Dates: start: 20101110, end: 20100101
  4. M.V.I. [Concomitant]
  5. FISH OIL [Concomitant]
  6. CETIRIZINE HCL [Concomitant]
  7. NASAL PREPARATIONS [Concomitant]

REACTIONS (5)
  - JUDGEMENT IMPAIRED [None]
  - DISTURBANCE IN ATTENTION [None]
  - HYPERSOMNIA [None]
  - FEELING ABNORMAL [None]
  - ILLOGICAL THINKING [None]
